FAERS Safety Report 9419506 (Version 1)
Quarter: 2013Q3

REPORT INFORMATION
  Report Type: Spontaneous
  Country: DK (occurrence: DK)
  Receive Date: 20130725
  Receipt Date: 20130725
  Transmission Date: 20140515
  Serious: Yes (Hospitalization, Other)
  Sender: FDA-Public Use
  Company Number: DK-AMGEN-DNKSP2013051831

PATIENT
  Age: 69 Year
  Sex: Male

DRUGS (16)
  1. NEUPOGEN [Suspect]
     Indication: MALIGNANT LYMPHOID NEOPLASM
     Dosage: DOSAGE FORM: UNSPECIFIED
     Route: 042
     Dates: start: 20110823
  2. NEUPOGEN [Suspect]
     Dosage: DOSAGE FORM: UNSPECIFIED
     Route: 042
     Dates: start: 20110906
  3. DOXORUBICIN HYDROCHLORIDE [Suspect]
     Indication: MALIGNANT LYMPHOID NEOPLASM
     Dosage: DOSAGE FORM: LIPOSOME INJECTION
     Route: 042
     Dates: start: 20110822
  4. DOXORUBICIN HYDROCHLORIDE [Suspect]
     Dosage: DOSAGE FORM: LIPOSOME INJECTION
     Route: 042
     Dates: start: 20110905
  5. RITUXIMAB [Suspect]
     Indication: MALIGNANT LYMPHOID NEOPLASM
     Dosage: DOSAGE FORM: UNSPECIFIED
     Route: 042
     Dates: start: 20110822
  6. RITUXIMAB [Suspect]
     Dosage: DOSAGE FORM: UNSPECIFIED
     Route: 042
     Dates: start: 20110905
  7. RITUXIMAB [Suspect]
     Dosage: DOSAGE FORM: UNSPECIFIED
     Route: 042
     Dates: start: 20120123
  8. PREDNISONE [Suspect]
     Indication: MALIGNANT LYMPHOID NEOPLASM
     Dosage: DOSAGE FORM: UNSPECIFIED, START PERIOD - 203 DAYS
     Route: 048
     Dates: start: 20110822
  9. PREDNISONE [Suspect]
     Dosage: DOSAGE FORM: UNSPECIFIED
     Route: 048
     Dates: start: 20110905
  10. PREDNISONE [Suspect]
     Dosage: DOSAGE FORM: UNSPECIFIED
     Route: 048
  11. WARFARIN SODIUM [Suspect]
     Indication: DEEP VEIN THROMBOSIS
     Dosage: DOSAGE FORM: UNSPECIFIED
     Route: 048
     Dates: start: 20111205
  12. VINCRISTINE [Suspect]
     Indication: MALIGNANT LYMPHOID NEOPLASM
     Dosage: DOSAGE FORM: UNSPECIFIED
     Route: 042
     Dates: start: 20110822
  13. VINCRISTINE [Suspect]
     Dosage: DOSAGE FORM: UNSPECIFIED
     Route: 042
     Dates: start: 20110905
  14. VINCRISTINE [Suspect]
     Dosage: DOSAGE FORM: UNSPECIFIED, START PERIOD - 98 DAYS
     Route: 042
     Dates: start: 20111205
  15. CYCLOPHOSPHAMIDE [Suspect]
     Indication: MALIGNANT LYMPHOID NEOPLASM
     Dosage: DOSAGE FORM: UNSPECIFIED, START PERIOD - 203 DAYS
     Route: 042
     Dates: start: 20110822
  16. CYCLOPHOSPHAMIDE [Suspect]
     Dosage: DOSAGE FORM: UNSPECIFIED
     Route: 042
     Dates: start: 20110905

REACTIONS (1)
  - Gastric ulcer haemorrhage [Unknown]
